FAERS Safety Report 4568425-1 (Version None)
Quarter: 2005Q1

REPORT INFORMATION
  Report Type: 
  Country: None (occurrence: None)
  Receive Date: 20050131
  Receipt Date: 20050117
  Transmission Date: 20050727
  Serious: Yes (Death, Life-Threatening, Hospitalization, Disabling, Other)
  Sender: FDA-Public Use
  Company Number: 2004242965JP

PATIENT
  Age: 54 Year
  Sex: Female

DRUGS (7)
  1. AROMASIN [Suspect]
     Indication: BREAST CANCER FEMALE
     Dosage: 25 MG (25 MG DAILY) ORAL
     Route: 048
     Dates: start: 20040809, end: 20041015
  2. PAMIDRONATE DISODIUM [Suspect]
     Indication: METASTASES TO BONE
     Dosage: SEE IMAGE
     Dates: start: 20030606, end: 20030606
  3. PAMIDRONATE DISODIUM [Suspect]
     Indication: METASTASES TO BONE
     Dosage: SEE IMAGE
     Dates: start: 20040913, end: 20040913
  4. PAMIDRONATE DISODIUM [Suspect]
     Indication: METASTASES TO BONE
     Dosage: SEE IMAGE
     Dates: start: 20041006, end: 20041006
  5. LOXOPROFEN SODIUM (LOXOPROFEN SODIUM) [Suspect]
     Indication: BONE PAIN
     Dosage: 180 MG (60 MG THREE TIMES DAILY)O RAL
     Route: 048
     Dates: start: 20040921, end: 20041014
  6. FLUCONAZOLE [Concomitant]
  7. MICAFUNGIN (MICAFUNGIN) [Concomitant]

REACTIONS (13)
  - ASTERIXIS [None]
  - BLOOD TEST ABNORMAL [None]
  - CHOLELITHIASIS [None]
  - CYANOSIS [None]
  - DIARRHOEA [None]
  - DRUG INEFFECTIVE [None]
  - GENERAL PHYSICAL HEALTH DETERIORATION [None]
  - HEPATIC ENCEPHALOPATHY [None]
  - HEPATITIS FULMINANT [None]
  - METASTASES TO BONE [None]
  - METASTASES TO LIVER [None]
  - MULTI-ORGAN FAILURE [None]
  - PNEUMONIA [None]
